FAERS Safety Report 6217721-0 (Version None)
Quarter: 2009Q2

REPORT INFORMATION
  Report Type: 
  Country: None (occurrence: None)
  Receive Date: 20090604
  Receipt Date: 20090604
  Transmission Date: 20091009
  Serious: No
  Sender: FDA-Public Use
  Company Number: None

PATIENT
  Sex: Female
  Weight: 89.8122 kg

DRUGS (1)
  1. IMPLANON [Suspect]
     Indication: CONTRACEPTION
     Dosage: 68 MG SUBDERMAL
     Route: 059
     Dates: start: 20080730, end: 20090603

REACTIONS (5)
  - BREAST DISCHARGE [None]
  - HAEMORRHAGE [None]
  - INSTILLATION SITE IRRITATION [None]
  - INSTILLATION SITE PRURITUS [None]
  - MOOD SWINGS [None]
